FAERS Safety Report 9554981 (Version 2)
Quarter: 2013Q4

REPORT INFORMATION
  Report Type: Spontaneous
  Country: US (occurrence: US)
  Receive Date: 20130926
  Receipt Date: 20131003
  Transmission Date: 20140711
  Serious: No
  Sender: FDA-Public Use
  Company Number: US-009507513-1309USA009263

PATIENT
  Age: 50 Year
  Sex: Male

DRUGS (3)
  1. VICTRELIS [Suspect]
     Indication: HEPATITIS C
     Dosage: 200MG, 4 CAPSULES 3 TIMES DAILY
     Route: 048
     Dates: start: 20130320
  2. RIBAVIRIN [Suspect]
     Dosage: UNK
     Route: 048
  3. PEGINTRON [Suspect]

REACTIONS (3)
  - Feeling hot [Not Recovered/Not Resolved]
  - Product formulation issue [Unknown]
  - Product taste abnormal [Unknown]
